FAERS Safety Report 14638010 (Version 1)
Quarter: 2018Q1

REPORT INFORMATION
  Report Type: Spontaneous
  Country: US (occurrence: US)
  Receive Date: 20180314
  Receipt Date: 20180314
  Transmission Date: 20180509
  Serious: No
  Sender: FDA-Public Use
  Company Number: US-VYERA PHARMACEUTICALS, LLC-2017TNG00020

PATIENT
  Age: 84 Year
  Sex: Female

DRUGS (4)
  1. LEUCOVORIN. [Suspect]
     Active Substance: LEUCOVORIN
     Indication: TOXOPLASMOSIS
     Dosage: 2 TABLETS, 1X/DAY
     Dates: start: 20170317
  2. SULFADIAZINE. [Suspect]
     Active Substance: SULFADIAZINE
     Indication: TOXOPLASMOSIS
     Dosage: 1 UNK, 4X/DAY
     Dates: start: 20170317
  3. DARAPRIM [Suspect]
     Active Substance: PYRIMETHAMINE
     Indication: TOXOPLASMOSIS
     Dosage: 4 TABLETS, 1X/DAY
     Route: 048
     Dates: start: 20170317, end: 20170317
  4. DARAPRIM [Suspect]
     Active Substance: PYRIMETHAMINE
     Dosage: 1 TABLETS, 4X/DAY
     Route: 048
     Dates: start: 20170318

REACTIONS (3)
  - Discomfort [Not Recovered/Not Resolved]
  - Vomiting [Not Recovered/Not Resolved]
  - Nausea [Not Recovered/Not Resolved]

NARRATIVE: CASE EVENT DATE: 20170318
